FAERS Safety Report 16843910 (Version 1)
Quarter: 2019Q3

REPORT INFORMATION
  Report Type: Spontaneous
  Country: CN (occurrence: CN)
  Receive Date: 20190924
  Receipt Date: 20190924
  Transmission Date: 20191005
  Serious: Yes (Other)
  Sender: FDA-Public Use
  Company Number: CN-PFIZER INC-2019403997

PATIENT
  Age: 43 Year
  Sex: Male
  Weight: 84.4 kg

DRUGS (4)
  1. BEI PING [Concomitant]
     Indication: ANALGESIC THERAPY
     Dosage: 1.4 G, 2X/DAY
     Route: 048
     Dates: start: 20190820, end: 20190824
  2. CARDURA XL [Suspect]
     Active Substance: DOXAZOSIN MESYLATE
     Indication: BENIGN PROSTATIC HYPERPLASIA
     Dosage: 4 MG, 1X/DAY
     Route: 048
     Dates: start: 20190820, end: 20190824
  3. WAN SHI NING [Concomitant]
     Indication: IMMUNOMODULATORY THERAPY
     Dosage: 11.2 G, 2X/DAY
     Route: 048
     Dates: start: 20190820, end: 20190824
  4. RELINQING KELI [Concomitant]
     Indication: POLYURIA
     Dosage: 84 G, 3X/DAY
     Route: 048
     Dates: start: 20190820, end: 20190824

REACTIONS (1)
  - Blood creatine phosphokinase increased [Recovered/Resolved]

NARRATIVE: CASE EVENT DATE: 20190824
